FAERS Safety Report 25307779 (Version 1)
Quarter: 2025Q2

REPORT INFORMATION
  Report Type: Spontaneous
  Country: FR (occurrence: FR)
  Receive Date: 20250513
  Receipt Date: 20250513
  Transmission Date: 20250716
  Serious: Yes (Hospitalization, Other)
  Sender: MYLAN
  Company Number: None

PATIENT
  Age: 85 Year
  Sex: Female

DRUGS (48)
  1. POSACONAZOLE [Suspect]
     Active Substance: POSACONAZOLE
     Indication: Prophylaxis
     Dosage: 300 MILLIGRAM, QD
     Dates: start: 20250221, end: 20250304
  2. POSACONAZOLE [Suspect]
     Active Substance: POSACONAZOLE
     Dosage: 300 MILLIGRAM, QD
     Route: 048
     Dates: start: 20250221, end: 20250304
  3. POSACONAZOLE [Suspect]
     Active Substance: POSACONAZOLE
     Dosage: 300 MILLIGRAM, QD
     Route: 048
     Dates: start: 20250221, end: 20250304
  4. POSACONAZOLE [Suspect]
     Active Substance: POSACONAZOLE
     Dosage: 300 MILLIGRAM, QD
     Dates: start: 20250221, end: 20250304
  5. FILGRASTIM [Suspect]
     Active Substance: FILGRASTIM
     Indication: Acute myeloid leukaemia
     Dosage: 30 INTERNATIONAL UNIT, QD, C1J1
     Dates: start: 20250303, end: 20250304
  6. FILGRASTIM [Suspect]
     Active Substance: FILGRASTIM
     Dosage: 30 INTERNATIONAL UNIT, QD, C1J1
     Route: 042
     Dates: start: 20250303, end: 20250304
  7. FILGRASTIM [Suspect]
     Active Substance: FILGRASTIM
     Dosage: 30 INTERNATIONAL UNIT, QD, C1J1
     Route: 042
     Dates: start: 20250303, end: 20250304
  8. FILGRASTIM [Suspect]
     Active Substance: FILGRASTIM
     Dosage: 30 INTERNATIONAL UNIT, QD, C1J1
     Dates: start: 20250303, end: 20250304
  9. VENETOCLAX [Concomitant]
     Active Substance: VENETOCLAX
  10. VENETOCLAX [Concomitant]
     Active Substance: VENETOCLAX
     Route: 065
  11. VENETOCLAX [Concomitant]
     Active Substance: VENETOCLAX
     Route: 065
  12. VENETOCLAX [Concomitant]
     Active Substance: VENETOCLAX
  13. LERCANIDIPINE HYDROCHLORIDE [Concomitant]
     Active Substance: LERCANIDIPINE HYDROCHLORIDE
  14. LERCANIDIPINE HYDROCHLORIDE [Concomitant]
     Active Substance: LERCANIDIPINE HYDROCHLORIDE
     Route: 065
  15. LERCANIDIPINE HYDROCHLORIDE [Concomitant]
     Active Substance: LERCANIDIPINE HYDROCHLORIDE
     Route: 065
  16. LERCANIDIPINE HYDROCHLORIDE [Concomitant]
     Active Substance: LERCANIDIPINE HYDROCHLORIDE
  17. PROMESTRIENE [Concomitant]
     Active Substance: PROMESTRIENE
  18. PROMESTRIENE [Concomitant]
     Active Substance: PROMESTRIENE
     Route: 065
  19. PROMESTRIENE [Concomitant]
     Active Substance: PROMESTRIENE
     Route: 065
  20. PROMESTRIENE [Concomitant]
     Active Substance: PROMESTRIENE
  21. LEVACETYLLEUCINE [Concomitant]
     Active Substance: LEVACETYLLEUCINE
  22. LEVACETYLLEUCINE [Concomitant]
     Active Substance: LEVACETYLLEUCINE
     Route: 065
  23. LEVACETYLLEUCINE [Concomitant]
     Active Substance: LEVACETYLLEUCINE
     Route: 065
  24. LEVACETYLLEUCINE [Concomitant]
     Active Substance: LEVACETYLLEUCINE
  25. ZOPICLONE [Concomitant]
     Active Substance: ZOPICLONE
  26. ZOPICLONE [Concomitant]
     Active Substance: ZOPICLONE
     Route: 065
  27. ZOPICLONE [Concomitant]
     Active Substance: ZOPICLONE
     Route: 065
  28. ZOPICLONE [Concomitant]
     Active Substance: ZOPICLONE
  29. CHOLECALCIFEROL [Concomitant]
     Active Substance: CHOLECALCIFEROL
  30. CHOLECALCIFEROL [Concomitant]
     Active Substance: CHOLECALCIFEROL
     Route: 065
  31. CHOLECALCIFEROL [Concomitant]
     Active Substance: CHOLECALCIFEROL
     Route: 065
  32. CHOLECALCIFEROL [Concomitant]
     Active Substance: CHOLECALCIFEROL
  33. PREGABALIN [Concomitant]
     Active Substance: PREGABALIN
  34. PREGABALIN [Concomitant]
     Active Substance: PREGABALIN
     Route: 065
  35. PREGABALIN [Concomitant]
     Active Substance: PREGABALIN
     Route: 065
  36. PREGABALIN [Concomitant]
     Active Substance: PREGABALIN
  37. COLCHICINE [Concomitant]
     Active Substance: COLCHICINE
  38. COLCHICINE [Concomitant]
     Active Substance: COLCHICINE
     Route: 065
  39. COLCHICINE [Concomitant]
     Active Substance: COLCHICINE
     Route: 065
  40. COLCHICINE [Concomitant]
     Active Substance: COLCHICINE
  41. POLYETHYLENE GLYCOLS [Concomitant]
     Active Substance: POLYETHYLENE GLYCOLS
  42. POLYETHYLENE GLYCOLS [Concomitant]
     Active Substance: POLYETHYLENE GLYCOLS
     Route: 065
  43. POLYETHYLENE GLYCOLS [Concomitant]
     Active Substance: POLYETHYLENE GLYCOLS
     Route: 065
  44. POLYETHYLENE GLYCOLS [Concomitant]
     Active Substance: POLYETHYLENE GLYCOLS
  45. AZACITIDINE [Concomitant]
     Active Substance: AZACITIDINE
  46. AZACITIDINE [Concomitant]
     Active Substance: AZACITIDINE
     Route: 065
  47. AZACITIDINE [Concomitant]
     Active Substance: AZACITIDINE
     Route: 065
  48. AZACITIDINE [Concomitant]
     Active Substance: AZACITIDINE

REACTIONS (3)
  - Cell death [Recovering/Resolving]
  - Rash maculo-papular [Recovering/Resolving]
  - Cholestasis [Recovered/Resolved]

NARRATIVE: CASE EVENT DATE: 20250227
